FAERS Safety Report 24057292 (Version 1)
Quarter: 2024Q3

REPORT INFORMATION
  Report Type: Spontaneous
  Country: PT (occurrence: PT)
  Receive Date: 20240706
  Receipt Date: 20240706
  Transmission Date: 20241016
  Serious: Yes (Other)
  Sender: AUROBINDO
  Company Number: PT-BBM-PT-BBM-202401991

PATIENT
  Age: 30 Year
  Sex: Male

DRUGS (8)
  1. TRAMADOL [Suspect]
     Active Substance: TRAMADOL\TRAMADOL HYDROCHLORIDE
     Indication: Procedural pain
     Dosage: 100 MILLIGRAM
     Route: 065
  2. ROPIVACAINE [Suspect]
     Active Substance: ROPIVACAINE
     Indication: Procedural pain
     Dosage: 25 MILLILITER (CONCENTRATION: 0.2%)
     Route: 042
  3. DEXMEDETOMIDINE [Suspect]
     Active Substance: DEXMEDETOMIDINE
     Indication: Procedural pain
     Dosage: 1 MICROGRAM/KILOGRAM
     Route: 065
  4. ACETAMINOPHEN [Suspect]
     Active Substance: ACETAMINOPHEN
     Indication: Procedural pain
     Dosage: 1 GRAM
     Route: 065
  5. PARECOXIB [Suspect]
     Active Substance: PARECOXIB
     Indication: Procedural pain
     Dosage: 40 MILLIGRAM
     Route: 065
  6. KETAMINE [Suspect]
     Active Substance: KETAMINE
     Indication: Procedural pain
     Dosage: 20 MILLIGRAM
     Route: 065
  7. TRANEXAMIC ACID [Concomitant]
     Active Substance: TRANEXAMIC ACID
     Indication: Procedural pain
     Dosage: 1 GRAM (BOLUS)
     Route: 065
  8. TRANEXAMIC ACID [Concomitant]
     Active Substance: TRANEXAMIC ACID
     Dosage: 1.5 MG/KG/H
     Route: 065

REACTIONS (1)
  - Drug ineffective [Recovered/Resolved]
